FAERS Safety Report 11260504 (Version 1)
Quarter: 2015Q3

REPORT INFORMATION
  Report Type: Report from Study
  Country: NL (occurrence: NL)
  Receive Date: 20150710
  Receipt Date: 20150710
  Transmission Date: 20151125
  Serious: Yes (Death)
  Sender: FDA-Public Use
  Company Number: NL-ABBVIE-15P-114-1424198-00

PATIENT
  Age: 59 Year
  Sex: Female

DRUGS (1)
  1. DUODOPA [Suspect]
     Active Substance: CARBIDOPA\LEVODOPA
     Indication: PARKINSON^S DISEASE
     Dosage: MD: 5.0 CD: 2.9 EXTRA DOSE: 1.5 ND: NO NIGHT DOSE
     Route: 050
     Dates: start: 20131001, end: 20150705

REACTIONS (1)
  - Death [Fatal]

NARRATIVE: CASE EVENT DATE: 20150705
